FAERS Safety Report 17266684 (Version 1)
Quarter: 2019Q4

REPORT INFORMATION
  Report Type: Spontaneous
  Country: US (occurrence: US)
  Receive Date: 20191219
  Receipt Date: 20191219
  Transmission Date: 20200122
  Serious: Yes (Other)
  Sender: FDA-Public Use
  Company Number: None

PATIENT
  Age: 84 Year
  Sex: Female
  Weight: 60.78 kg

DRUGS (15)
  1. ATORVASTATIN [Suspect]
     Active Substance: ATORVASTATIN
     Indication: BLOOD CHOLESTEROL
     Dosage: ?          QUANTITY:1 DF DOSAGE FORM;?
     Route: 048
  2. ONETOUCH GLUCOMETER [Concomitant]
  3. TYLENOL [Concomitant]
     Active Substance: ACETAMINOPHEN
  4. FERROUS SULFATE. [Concomitant]
     Active Substance: FERROUS SULFATE
  5. MELATONIN [Concomitant]
     Active Substance: MELATONIN
  6. NITROGLYCERIN. [Concomitant]
     Active Substance: NITROGLYCERIN
  7. VITAMIN C [Concomitant]
     Active Substance: ASCORBIC ACID
  8. ALBUTEROL. [Concomitant]
     Active Substance: ALBUTEROL
  9. LISINOPRIL. [Suspect]
     Active Substance: LISINOPRIL
     Dosage: ?          QUANTITY:1 DF DOSAGE FORM;?
     Route: 048
  10. AMOXICILLIN. [Concomitant]
     Active Substance: AMOXICILLIN
  11. TORSEMIDE. [Concomitant]
     Active Substance: TORSEMIDE
  12. CALCIUM WITH VITAMIN D3 [Concomitant]
     Active Substance: CALCIUM CARBONATE\CHOLECALCIFEROL
  13. METOPROLOL. [Concomitant]
     Active Substance: METOPROLOL
  14. CINNAMOMUM VERUM BARK [Concomitant]
     Active Substance: CINNAMON
  15. WARFARIN [Concomitant]
     Active Substance: WARFARIN

REACTIONS (8)
  - Pollakiuria [None]
  - Asthenia [None]
  - Myalgia [None]
  - Vision blurred [None]
  - Cough [None]
  - Arthralgia [None]
  - Visual impairment [None]
  - Ocular discomfort [None]

NARRATIVE: CASE EVENT DATE: 20190301
